FAERS Safety Report 17921896 (Version 1)
Quarter: 2020Q2

REPORT INFORMATION
  Report Type: Spontaneous
  Country: US (occurrence: US)
  Receive Date: 20200619
  Receipt Date: 20200619
  Transmission Date: 20200714
  Serious: Yes (Death)
  Sender: FDA-Public Use
  Company Number: None

PATIENT
  Age: 45 Year
  Sex: Male

DRUGS (10)
  1. TEMOZOLOMIDE. [Suspect]
     Active Substance: TEMOZOLOMIDE
     Indication: BRAIN NEOPLASM MALIGNANT
     Route: 048
     Dates: start: 20181203, end: 20200429
  2. ONDANSETRON [Concomitant]
     Active Substance: ONDANSETRON
  3. CELEBREX [Concomitant]
     Active Substance: CELECOXIB
  4. ROPINIROLE. [Concomitant]
     Active Substance: ROPINIROLE
  5. ANTIBIOTIC PLUS [Concomitant]
  6. MUCINEX [Concomitant]
     Active Substance: GUAIFENESIN
  7. LEVETIRACETAM. [Concomitant]
     Active Substance: LEVETIRACETAM
  8. CELECOXIB. [Concomitant]
     Active Substance: CELECOXIB
  9. BIOTIN [Concomitant]
     Active Substance: BIOTIN
  10. VIMPAT [Concomitant]
     Active Substance: LACOSAMIDE

REACTIONS (1)
  - Death [None]

NARRATIVE: CASE EVENT DATE: 20200429
